FAERS Safety Report 13637777 (Version 1)
Quarter: 2017Q2

REPORT INFORMATION
  Report Type: Spontaneous
  Country: DE (occurrence: DE)
  Receive Date: 20170609
  Receipt Date: 20170609
  Transmission Date: 20170830
  Serious: Yes (Other)
  Sender: FDA-Public Use
  Company Number: DE-TEVA-774424GER

PATIENT
  Age: 39 Year
  Sex: Female

DRUGS (2)
  1. TRAMADOL 100MG [Suspect]
     Active Substance: TRAMADOL
     Indication: PULPITIS DENTAL
     Dosage: 2 TABLETS EVERY 5 HOURS
     Dates: start: 2017, end: 2017
  2. IBUPROFEN 600 MG [Concomitant]
     Active Substance: IBUPROFEN
     Dosage: PREVIOUSLY 1 X 600 MG

REACTIONS (3)
  - Vomiting [Recovered/Resolved]
  - Circulatory collapse [Recovered/Resolved]
  - Nausea [Recovered/Resolved]

NARRATIVE: CASE EVENT DATE: 20170320
